FAERS Safety Report 8195575-3 (Version None)
Quarter: 2012Q1

REPORT INFORMATION
  Report Type: 
  Country: None (occurrence: None)
  Receive Date: 20120308
  Receipt Date: 20120305
  Transmission Date: 20120608
  Serious: Yes (Hospitalization, Other)
  Sender: FDA-Public Use
  Company Number: US-PFIZER INC-2010150645

PATIENT
  Sex: Female
  Weight: 81.179 kg

DRUGS (2)
  1. LIPITOR [Suspect]
     Indication: BLOOD CHOLESTEROL INCREASED
     Dosage: 40 MG, 1X/DAY
     Route: 048
     Dates: start: 20000101
  2. XANAX [Suspect]
     Indication: ANXIETY
     Dosage: 1 MG, 1X/DAY
     Dates: start: 20000101

REACTIONS (7)
  - SINUS CONGESTION [None]
  - DIABETES MELLITUS [None]
  - LEG AMPUTATION [None]
  - PNEUMONIA [None]
  - SEDATION [None]
  - CEREBROVASCULAR ACCIDENT [None]
  - SINUSITIS [None]
